FAERS Safety Report 15020188 (Version 3)
Quarter: 2018Q3

REPORT INFORMATION
  Report Type: Spontaneous
  Country: BR (occurrence: BR)
  Receive Date: 20180618
  Receipt Date: 20180815
  Transmission Date: 20181010
  Serious: Yes (Other)
  Sender: FDA-Public Use
  Company Number: BR-ROCHE-2140653

PATIENT
  Sex: Female

DRUGS (1)
  1. RIVOTRIL [Suspect]
     Active Substance: CLONAZEPAM
     Indication: TREMOR
     Route: 065

REACTIONS (5)
  - Off label use [Unknown]
  - Heart rate decreased [Recovered/Resolved]
  - Drug interaction [Unknown]
  - Ill-defined disorder [Recovered/Resolved]
  - Intentional product use issue [Unknown]
